FAERS Safety Report 21393796 (Version 2)
Quarter: 2022Q4

REPORT INFORMATION
  Report Type: Report from Study
  Country: KR (occurrence: KR)
  Receive Date: 20220930
  Receipt Date: 20221024
  Transmission Date: 20230113
  Serious: Yes (Hospitalization)
  Sender: FDA-Public Use
  Company Number: KR-BAYER-2022A134270

PATIENT
  Sex: Male
  Weight: 59 kg

DRUGS (37)
  1. RIVAROXABAN [Suspect]
     Active Substance: RIVAROXABAN
     Indication: Peripheral arterial occlusive disease
     Dosage: 2.5 MG, BID
     Route: 048
     Dates: start: 20210310, end: 20220708
  2. RIVAROXABAN [Suspect]
     Active Substance: RIVAROXABAN
     Indication: Coronary artery disease
     Route: 048
  3. RIVAROXABAN [Suspect]
     Active Substance: RIVAROXABAN
     Indication: Cardiovascular event prophylaxis
     Route: 048
  4. ASPIRIN [Suspect]
     Active Substance: ASPIRIN
     Indication: Coronary artery disease
     Dosage: 100 MG, QD
     Dates: start: 20210310
  5. ASPIRIN [Suspect]
     Active Substance: ASPIRIN
     Indication: Peripheral arterial occlusive disease
  6. ASPIRIN [Suspect]
     Active Substance: ASPIRIN
     Indication: Cardiovascular event prophylaxis
  7. CLOPIDOGREL [Concomitant]
     Active Substance: CLOPIDOGREL BISULFATE
     Dosage: 75 MG, QD
     Dates: start: 20140425, end: 20210309
  8. CLOPIDOGREL [Concomitant]
     Active Substance: CLOPIDOGREL BISULFATE
     Dosage: 75 MG, QD
     Dates: start: 20220712
  9. DILATREND SR [Concomitant]
     Dosage: 32 MG, QD
     Dates: start: 20131126
  10. ISOKET RETARD [Concomitant]
     Dosage: 40 MG, BID
     Dates: start: 20140512, end: 20210831
  11. DILTIAZEM HYDROCHLORIDE [Concomitant]
     Active Substance: DILTIAZEM HYDROCHLORIDE
     Dosage: 30 MG, BID
     Dates: start: 20160622
  12. JANUMET [Concomitant]
     Active Substance: METFORMIN HYDROCHLORIDE\SITAGLIPTIN PHOSPHATE
     Dosage: 1 DF, BID
     Dates: start: 20170404
  13. NICORANDIL [Concomitant]
     Active Substance: NICORANDIL
     Dosage: 10 MG, BID
     Dates: start: 20170404, end: 20220708
  14. NICORANDIL [Concomitant]
     Active Substance: NICORANDIL
     Dosage: 5 MG, BID
     Dates: start: 20220709
  15. LIPILOU [Concomitant]
     Dosage: 40 MG, QD
     Dates: start: 20170404, end: 20220709
  16. KANARB [Concomitant]
     Dosage: 15 MG, QD
     Dates: start: 20180404, end: 20210831
  17. RABEPRAZOLE SODIUM [Concomitant]
     Active Substance: RABEPRAZOLE SODIUM
     Dosage: 10 MG, QD
     Dates: start: 20210310
  18. FERROUS SULFATE [Concomitant]
     Active Substance: FERROUS SULFATE
     Dosage: 256 MG, QD
     Dates: start: 20210310
  19. TRIMETAZIDINE DIHYDROCHLORIDE [Concomitant]
     Active Substance: TRIMETAZIDINE DIHYDROCHLORIDE
     Dosage: 35 MG, BID
     Dates: start: 20160622, end: 20210309
  20. TRIMETAZIDINE DIHYDROCHLORIDE [Concomitant]
     Active Substance: TRIMETAZIDINE DIHYDROCHLORIDE
     Dosage: 35 MG, BID
     Dates: start: 20220709
  21. VALSARTAN [Concomitant]
     Active Substance: VALSARTAN
     Dosage: 40 MG, QD
     Dates: start: 20220223
  22. TICAGRELOR [Concomitant]
     Active Substance: TICAGRELOR
     Dosage: 180 MG, QD
     Dates: start: 20220708, end: 20220708
  23. TICAGRELOR [Concomitant]
     Active Substance: TICAGRELOR
     Dosage: 90 MG, BID
     Dates: start: 20220709, end: 20220709
  24. TICAGRELOR [Concomitant]
     Active Substance: TICAGRELOR
     Dosage: 180 MG, QD
     Dates: start: 20220711, end: 20220711
  25. LIPITOR [Concomitant]
     Active Substance: ATORVASTATIN CALCIUM
     Dosage: 40 MG, QD
     Dates: start: 20220709
  26. LASIX [Concomitant]
     Active Substance: FUROSEMIDE
     Dosage: 20 MG, BID
     Dates: start: 20220709
  27. ATIVAN [Concomitant]
     Active Substance: LORAZEPAM
     Dosage: 0.5 MG, QD
     Dates: start: 20220709, end: 20220709
  28. FINASTERIDE [Concomitant]
     Active Substance: FINASTERIDE
     Dosage: 5 MG, QD
     Dates: start: 20220710
  29. CONBLOC [Concomitant]
     Dosage: 1.25 MG, QD
     Dates: start: 20220711, end: 20220712
  30. CONBLOC [Concomitant]
     Dosage: 2.5 MG, QD
     Dates: start: 20220712
  31. SPIRODACTON [Concomitant]
     Dosage: 12.5 MG, QD
     Dates: start: 20220711
  32. POTASSIUM CHLORIDE [Concomitant]
     Active Substance: POTASSIUM CHLORIDE
     Dosage: 600 MG, TID
     Dates: start: 20220711, end: 20220712
  33. RABIET [Concomitant]
     Dosage: 10 MG, QD
     Dates: start: 20220712
  34. ACERTIL ARGININE [Concomitant]
     Dosage: 2.5 MG, QD
     Dates: start: 20220712, end: 20220713
  35. ACERTIL ARGININE [Concomitant]
     Dosage: 5 MG, QD
     Dates: start: 20220713
  36. HARNAL [Concomitant]
     Active Substance: TAMSULOSIN HYDROCHLORIDE
     Dosage: 0.2 MG, QD
     Dates: start: 20220713
  37. MACPERAN [METOCLOPRAMIDE HYDROCHLORIDE] [Concomitant]
     Dosage: 5 MG, BID
     Dates: start: 20220810

REACTIONS (1)
  - Oedema peripheral [Recovering/Resolving]

NARRATIVE: CASE EVENT DATE: 20220819
